FAERS Safety Report 14207991 (Version 1)
Quarter: 2017Q4

REPORT INFORMATION
  Report Type: Report from Study
  Country: CR (occurrence: CR)
  Receive Date: 20171121
  Receipt Date: 20171121
  Transmission Date: 20180321
  Serious: Yes (Other)
  Sender: FDA-Public Use
  Company Number: PHHY2017CR170018

PATIENT
  Age: 68 Year
  Sex: Male

DRUGS (3)
  1. EXFORGE [Suspect]
     Active Substance: AMLODIPINE BESYLATE\VALSARTAN
     Indication: PRODUCT USED FOR UNKNOWN INDICATION
     Dosage: (AMLODIPINE 5MG, VALSARTAN 320MG)
     Route: 065
  2. CO-DIOVAN [Suspect]
     Active Substance: HYDROCHLOROTHIAZIDE\VALSARTAN
     Indication: PRODUCT USED FOR UNKNOWN INDICATION
     Dosage: (HYDROCHLOROTHIAZIDE 25MG, VALSARTAN 320MG)
     Route: 065
  3. EXFORGE HCT [Suspect]
     Active Substance: AMLODIPINE BESYLATE\HYDROCHLOROTHIAZIDE\VALSARTAN
     Indication: PRODUCT USED FOR UNKNOWN INDICATION
     Dosage: (AMLODIPINE 10MG, HYDROCHLOROTHIAZIDE 25MG, VALSARTAN 320MG)
     Route: 065

REACTIONS (7)
  - Sleep apnoea syndrome [Unknown]
  - Abdominal discomfort [Unknown]
  - Arterial disorder [Unknown]
  - Condition aggravated [Unknown]
  - Discomfort [Unknown]
  - Malaise [Unknown]
  - Agitation [Unknown]
